FAERS Safety Report 18234568 (Version 1)
Quarter: 2020Q3

REPORT INFORMATION
  Report Type: Spontaneous
  Country: IT (occurrence: IT)
  Receive Date: 20200904
  Receipt Date: 20200904
  Transmission Date: 20201103
  Serious: Yes (Hospitalization, Other)
  Sender: FDA-Public Use
  Company Number: IT-BRISTOL-MYERS SQUIBB COMPANY-BMS-2020-068945

PATIENT
  Age: 85 Year
  Sex: Male

DRUGS (6)
  1. COUMADIN [Suspect]
     Active Substance: WARFARIN SODIUM
     Indication: ATRIAL FIBRILLATION
     Dosage: 1 DOSAGE FORM, 1DAY
     Route: 048
     Dates: end: 20180124
  2. ANTRA [OMEPRAZOLE MAGNESIUM] [Concomitant]
     Indication: CHRONIC GASTRITIS
     Dosage: 40 MILLIGRAM, QD
     Route: 048
  3. CLEXANE [Interacting]
     Active Substance: ENOXAPARIN SODIUM
     Indication: ATRIAL FIBRILLATION
     Dosage: 1 DOSAGE FORM
     Route: 030
     Dates: end: 20180124
  4. RIOPAN [PIROXICAM] [Concomitant]
     Active Substance: PIROXICAM
     Indication: CHRONIC GASTRITIS
     Dosage: 1 DOSAGE FORM, QD
     Route: 048
  5. PREDNISONE. [Concomitant]
     Active Substance: PREDNISONE
     Indication: OPTIC ISCHAEMIC NEUROPATHY
     Dosage: 12.5 MILLIGRAM, QD
     Route: 048
  6. RAMIPRIL. [Concomitant]
     Active Substance: RAMIPRIL
     Indication: HYPERTENSION
     Dosage: 2.5 MILLIGRAM, QD
     Route: 048

REACTIONS (7)
  - Overdose [Recovering/Resolving]
  - International normalised ratio increased [Recovering/Resolving]
  - Epistaxis [Recovering/Resolving]
  - Labelled drug-drug interaction medication error [Recovering/Resolving]
  - Drug abuse [Recovering/Resolving]
  - Haematuria [Recovering/Resolving]
  - Conjunctival haemorrhage [Recovering/Resolving]

NARRATIVE: CASE EVENT DATE: 20180123
